FAERS Safety Report 11821484 (Version 2)
Quarter: 2016Q1

REPORT INFORMATION
  Report Type: Spontaneous
  Country: US (occurrence: US)
  Receive Date: 20151210
  Receipt Date: 20160210
  Transmission Date: 20160525
  Serious: No
  Sender: FDA-Public Use
  Company Number: US-PFIZER INC-2015432447

PATIENT
  Age: 52 Year
  Sex: Female
  Weight: 77 kg

DRUGS (2)
  1. DOXYCYCLINE HYCLATE. [Suspect]
     Active Substance: DOXYCYCLINE HYCLATE
     Indication: TOOTH INFECTION
     Dosage: 100 MG, 2X/DAY
     Route: 048
     Dates: start: 20151201, end: 20151211
  2. DOXYCYCLINE HYCLATE. [Suspect]
     Active Substance: DOXYCYCLINE HYCLATE
     Indication: TOOTHACHE
     Dosage: 100 MG, UNK
     Dates: start: 201510

REACTIONS (11)
  - Rash [Unknown]
  - Condition aggravated [Unknown]
  - Fatigue [Recovered/Resolved]
  - Toothache [Unknown]
  - Product use issue [Unknown]
  - Agitation [Recovered/Resolved]
  - Asthenia [Recovered/Resolved]
  - Hypersensitivity [Recovered/Resolved]
  - Pain in extremity [Recovered/Resolved]
  - Dyspnoea [Recovered/Resolved]
  - Reaction to colouring [Unknown]

NARRATIVE: CASE EVENT DATE: 201510
